FAERS Safety Report 5130035-5 (Version None)
Quarter: 2006Q4

REPORT INFORMATION
  Report Type: 
  Country: None (occurrence: None)
  Receive Date: 20061018
  Receipt Date: 20061013
  Transmission Date: 20070319
  Serious: Yes (Death, Hospitalization)
  Sender: FDA-Public Use
  Company Number: CG-MERCK-0610USA09624

PATIENT
  Age: 51 Year
  Sex: Male
  Weight: 63 kg

DRUGS (1)
  1. STROMECTOL [Suspect]
     Route: 048
     Dates: start: 20060711, end: 20060711

REACTIONS (5)
  - AREFLEXIA [None]
  - DEATH [None]
  - ENCEPHALOPATHY [None]
  - LOSS OF CONSCIOUSNESS [None]
  - TACHYCARDIA [None]
